FAERS Safety Report 18182770 (Version 1)
Quarter: 2020Q3

REPORT INFORMATION
  Report Type: Other
  Country: ES (occurrence: ES)
  Receive Date: 20200821
  Receipt Date: 20200821
  Transmission Date: 20201103
  Serious: Yes (Other)
  Sender: FDA-Public Use
  Company Number: ES-COVIS PHARMA B.V.-2013P1015393

PATIENT
  Age: 40 Year
  Sex: Male

DRUGS (2)
  1. IMMUNOGLOBULIN [Concomitant]
     Indication: MOTOR NEURONE DISEASE
     Route: 042
     Dates: start: 200003
  2. RILUZOLE. [Suspect]
     Active Substance: RILUZOLE
     Indication: MOTOR NEURONE DISEASE
     Route: 048
     Dates: start: 20000905, end: 20001020

REACTIONS (7)
  - Aspartate aminotransferase increased [Unknown]
  - Alanine aminotransferase increased [Unknown]
  - Abdominal pain [Unknown]
  - Hyperamylasaemia [Unknown]
  - Pancreatitis acute [Recovered/Resolved]
  - Vomiting [Unknown]
  - Leukocytosis [Unknown]

NARRATIVE: CASE EVENT DATE: 20001020
